FAERS Safety Report 9034164 (Version 1)
Quarter: 2013Q1

REPORT INFORMATION
  Report Type: Spontaneous
  Country: IE (occurrence: IE)
  Receive Date: 20130128
  Receipt Date: 20130128
  Transmission Date: 20140127
  Serious: Yes (Death, Hospitalization)
  Sender: FDA-Public Use
  Company Number: IE-AMGEN-IRLSP2012022396

PATIENT
  Age: 29 Year
  Sex: Female

DRUGS (13)
  1. ARANESP [Suspect]
     Indication: VULVAL CANCER
     Dosage: 500 MUG, 3 TIMES/WK
     Route: 058
     Dates: start: 20120112
  2. FOLIC ACID [Concomitant]
  3. SLOW-K [Concomitant]
  4. ZOLPIDEM [Concomitant]
  5. OXYNORM [Concomitant]
  6. STEMETIL                           /00013301/ [Concomitant]
  7. OXYCONTIN [Concomitant]
  8. VALOID /00014902/ [Concomitant]
  9. LOPRAZOLAM [Concomitant]
  10. BISOPROLOL [Concomitant]
  11. NEURONTIN [Concomitant]
  12. ELTROXIN [Concomitant]
  13. LACTULOSE [Concomitant]

REACTIONS (2)
  - Death [Fatal]
  - Hospitalisation [Unknown]
